FAERS Safety Report 7316552-8 (Version None)
Quarter: 2011Q1

REPORT INFORMATION
  Report Type: 
  Country: None (occurrence: None)
  Receive Date: 20110226
  Receipt Date: 20100709
  Transmission Date: 20110831
  Serious: No
  Sender: FDA-Public Use
  Company Number: US-ALLERGAN-1008933US

PATIENT

DRUGS (1)
  1. BOTOXA? [Suspect]
     Indication: PRODUCT USED FOR UNKNOWN INDICATION
     Route: 030

REACTIONS (3)
  - RADICULOPATHY [None]
  - PERIPHERAL SENSORY NEUROPATHY [None]
  - NEUROPATHY PERIPHERAL [None]
